FAERS Safety Report 19978594 (Version 1)
Quarter: 2021Q4

REPORT INFORMATION
  Report Type: Spontaneous
  Country: GB (occurrence: GB)
  Receive Date: 20211020
  Receipt Date: 20211020
  Transmission Date: 20220303
  Serious: Yes (Hospitalization)
  Sender: FDA-Public Use
  Company Number: GB-GLAXOSMITHKLINE-GB2021EME212006

PATIENT
  Age: 53 Year
  Sex: Female

DRUGS (1)
  1. NIRAPARIB [Suspect]
     Active Substance: NIRAPARIB
     Indication: Product used for unknown indication
     Dosage: UNK

REACTIONS (8)
  - Hospitalisation [Unknown]
  - Inflammatory marker increased [Unknown]
  - Colitis [Unknown]
  - Lymphocyte count increased [Unknown]
  - Pyrexia [Unknown]
  - Tachycardia [Unknown]
  - Splenomegaly [Unknown]
  - Malaise [Unknown]
